FAERS Safety Report 19144779 (Version 6)
Quarter: 2021Q3

REPORT INFORMATION
  Report Type: Report from Study
  Country: GB (occurrence: GB)
  Receive Date: 20210416
  Receipt Date: 20210901
  Transmission Date: 20211014
  Serious: Yes (Hospitalization, Other)
  Sender: FDA-Public Use
  Company Number: GB-CELLTRION INC.-2021GB004981

PATIENT

DRUGS (22)
  1. TRASTUZUMAB;VORHYALURONIDASE ALFA [Suspect]
     Active Substance: HYALURONIDASE (HUMAN RECOMBINANT)\TRASTUZUMAB
     Indication: BREAST CANCER METASTATIC
     Dosage: 600 MG, EVERY 3 WEEKS
     Route: 058
     Dates: start: 20170316, end: 20171130
  2. NISTATIN [Concomitant]
     Active Substance: NYSTATIN
     Dosage: DOSE: 100000 U, PER 0.25 DAY
     Route: 048
     Dates: start: 20190603
  3. CHLORPHENAMINE [Concomitant]
     Active Substance: CHLORPHENIRAMINE MALEATE
     Indication: PREMEDICATION
     Dosage: 10 MG, FREQUENCY: ONCE BEFORE TREATMENT
     Route: 042
     Dates: start: 20170316
  4. METOCLOPRAMIDE. [Concomitant]
     Active Substance: METOCLOPRAMIDE
     Indication: PROPHYLAXIS OF NAUSEA AND VOMITING
     Dosage: 10 MG, PER 0.33 DAY
     Route: 048
     Dates: start: 20170316
  5. DALTEPARIN [Concomitant]
     Active Substance: DALTEPARIN
     Indication: PROPHYLAXIS
     Dosage: 2 %, DAILY
     Route: 061
     Dates: start: 20170327, end: 20170328
  6. GRANISETRON [Concomitant]
     Active Substance: GRANISETRON
     Indication: PREMEDICATION
     Dosage: 1 MG (FREQUENCY: ONCE BEFORE TREATMENT)
     Route: 042
     Dates: start: 20170316
  7. DOCETAXEL. [Suspect]
     Active Substance: DOCETAXEL
     Indication: BREAST CANCER METASTATIC
     Dosage: 120 MG, EVERY 3 WEEKS
     Route: 042
     Dates: start: 20170316, end: 20170629
  8. DEXAMETHASONE. [Concomitant]
     Active Substance: DEXAMETHASONE
     Indication: PROPHYLAXIS OF NAUSEA AND VOMITING
     Dosage: 8 MG, PER 0.5 DAY
     Route: 048
     Dates: start: 20170315
  9. DEXAMETHASONE. [Concomitant]
     Active Substance: DEXAMETHASONE
     Dosage: 1 MG, DAILY
     Route: 048
     Dates: start: 201811, end: 20181113
  10. DEXAMETHASONE. [Concomitant]
     Active Substance: DEXAMETHASONE
     Dosage: 0.5 MG, DAILY
     Route: 048
     Dates: start: 20181113
  11. PARACETAMOL [Concomitant]
     Active Substance: ACETAMINOPHEN
     Indication: PREMEDICATION
     Dosage: 1000 MG (FREQUENCY: ONCE BEFORE TREATMENT, PHARMACEUTICAL DOSE FORM: 9)
     Route: 048
     Dates: start: 20170316
  12. PERTUZUMAB. [Suspect]
     Active Substance: PERTUZUMAB
     Dosage: 840 MG (FREQUENCY: OTHER)
     Route: 042
     Dates: start: 20170316, end: 20170316
  13. HYDROCORTISONE. [Concomitant]
     Active Substance: HYDROCORTISONE
     Indication: PREMEDICATION
     Dosage: 1 %, (FREQUENCY: ONCE BEFORE TREATMENT)
     Route: 061
     Dates: start: 2015
  14. TRASTUZUMAB. [Suspect]
     Active Substance: TRASTUZUMAB
     Dosage: 350 MG, EVERY 3 WEEKS (PHARMACEUTICAL DOSE FORM: 230)
     Route: 041
     Dates: start: 20171220
  15. TRASTUZUMAB. [Suspect]
     Active Substance: TRASTUZUMAB
     Indication: BREAST CANCER METASTATIC
     Dosage: 600 MG, EVERY 3 WEEKS (PHARMACEUTICAL DOSE FORM: 230)
     Route: 041
     Dates: start: 20170316, end: 20171130
  16. PERTUZUMAB. [Suspect]
     Active Substance: PERTUZUMAB
     Indication: BREAST CANCER METASTATIC
     Dosage: 420 MG, EVERY 3 WEEKS
     Route: 042
     Dates: start: 20170406
  17. APREPITANT. [Concomitant]
     Active Substance: APREPITANT
     Indication: PREMEDICATION
     Dosage: 125 MG, PER 0.5 DAY (FREQUENCY: ONCE BEFORE TREATMENT)
     Route: 048
     Dates: start: 20170316
  18. DENOSUMAB [Concomitant]
     Active Substance: DENOSUMAB
     Indication: BONE DISORDER
     Dosage: 120 MG, EVERY 6 WEEKS
     Route: 058
     Dates: start: 20180111
  19. DEXAMETHASONE. [Concomitant]
     Active Substance: DEXAMETHASONE
     Indication: PREMEDICATION
     Dosage: 6.6 MG (FREQUENCY: ONCE BEFORE TREATMENT)
     Route: 042
     Dates: start: 20170316
  20. ONDANSETRON [Concomitant]
     Active Substance: ONDANSETRON
     Indication: PROPHYLAXIS OF NAUSEA AND VOMITING
     Dosage: 8 MG, PER 0.5 DAY
     Route: 048
     Dates: start: 20170316
  21. DEXAMETHASONE. [Concomitant]
     Active Substance: DEXAMETHASONE
     Dosage: 0.5 MG, EVERY 2 DAYS
     Route: 048
     Dates: start: 20190601
  22. SODIUM FUSIDATE [Concomitant]
     Active Substance: FUSIDATE SODIUM
     Dosage: 2 %, DAILY
     Route: 061
     Dates: start: 20170324, end: 20170328

REACTIONS (11)
  - Decreased appetite [Not Recovered/Not Resolved]
  - Hypernatraemia [Recovered/Resolved]
  - Onychalgia [Recovered/Resolved]
  - Pain in jaw [Recovered/Resolved]
  - Alopecia [Recovered/Resolved]
  - Fatigue [Recovered/Resolved]
  - Malaise [Recovered/Resolved]
  - Haematemesis [Recovered/Resolved]
  - Candida infection [Recovered/Resolved]
  - Neutropenia [Recovered/Resolved]
  - Nausea [Not Recovered/Not Resolved]

NARRATIVE: CASE EVENT DATE: 20170324
